FAERS Safety Report 6752163-0 (Version None)
Quarter: 2010Q2

REPORT INFORMATION
  Report Type: 
  Country: None (occurrence: None)
  Receive Date: 20100601
  Receipt Date: 20100601
  Transmission Date: 20101027
  Serious: Yes (Hospitalization)
  Sender: FDA-Public Use
  Company Number: None

PATIENT
  Age: 14 Year
  Sex: Female

DRUGS (2)
  1. DEPAKOTE [Suspect]
     Indication: EPILEPSY
  2. PHENOBARBITAL TAB [Suspect]
     Indication: EPILEPSY

REACTIONS (5)
  - NEUTROPHIL PERCENTAGE INCREASED [None]
  - OVARIAN GRANULOSA-THECA CELL TUMOUR [None]
  - PERITONITIS SCLEROSING [None]
  - RESPIRATORY DISTRESS [None]
  - WHITE BLOOD CELL COUNT INCREASED [None]
